FAERS Safety Report 20370079 (Version 2)
Quarter: 2022Q1

REPORT INFORMATION
  Report Type: Spontaneous
  Country: US (occurrence: US)
  Receive Date: 20220124
  Receipt Date: 20220324
  Transmission Date: 20220424
  Serious: Yes (Other)
  Sender: FDA-Public Use
  Company Number: US-GW PHARMA-202201USGW00259

PATIENT
  Sex: Male
  Weight: 50.2 kg

DRUGS (2)
  1. EPIDIOLEX [Suspect]
     Active Substance: CANNABIDIOL
     Indication: Epilepsy
     Dosage: 3.98 MG/KG/DAY, 100 MILLIGRAM, BID (FIRST SHIPPED ON 17-DEC-2021, LAST SHIPPED ON 16-FEB-2022)
     Route: 048
     Dates: start: 202112, end: 2022
  2. EPIDIOLEX [Suspect]
     Active Substance: CANNABIDIOL
     Indication: Seizure

REACTIONS (4)
  - Seizure [Unknown]
  - Seizure [Unknown]
  - Infection [Unknown]
  - Incorrect dose administered [Unknown]
